FAERS Safety Report 17809690 (Version 1)
Quarter: 2020Q2

REPORT INFORMATION
  Report Type: Spontaneous
  Country: IN (occurrence: IN)
  Receive Date: 20200520
  Receipt Date: 20200520
  Transmission Date: 20200714
  Serious: Yes (Death)
  Sender: FDA-Public Use
  Company Number: IN-CELGENEUS-IND-20200505858

PATIENT
  Age: 73 Year
  Sex: Male

DRUGS (7)
  1. GRAFEEL [Concomitant]
     Indication: WHITE BLOOD CELL COUNT
  2. GRAFEEL [Concomitant]
     Indication: NEUTROPENIA
     Dosage: 300 MICROGRAM
     Route: 058
     Dates: start: 20191026, end: 20191103
  3. ABRAXANE [Suspect]
     Active Substance: PACLITAXEL
     Indication: NON-SMALL CELL LUNG CANCER STAGE IV
     Route: 042
     Dates: start: 20191011, end: 20191122
  4. DURVALUMAB. [Concomitant]
     Active Substance: DURVALUMAB
     Indication: NON-SMALL CELL LUNG CANCER STAGE IV
     Route: 042
     Dates: start: 20191011, end: 20191122
  5. CARBOPLATIN. [Suspect]
     Active Substance: CARBOPLATIN
     Route: 042
     Dates: start: 20191122, end: 20191122
  6. GEMINOR M [Concomitant]
     Indication: DIABETES MELLITUS
     Dosage: 2 DOSAGE FORMS
     Route: 048
     Dates: start: 20190830
  7. CARBOPLATIN. [Suspect]
     Active Substance: CARBOPLATIN
     Indication: NON-SMALL CELL LUNG CANCER STAGE IV
     Route: 042
     Dates: start: 20191011, end: 20191011

REACTIONS (2)
  - Non-small cell lung cancer [Fatal]
  - Asthenia [Not Recovered/Not Resolved]

NARRATIVE: CASE EVENT DATE: 20191102
